FAERS Safety Report 12729664 (Version 1)
Quarter: 2016Q3

REPORT INFORMATION
  Report Type: Spontaneous
  Country: US (occurrence: US)
  Receive Date: 20160909
  Receipt Date: 20160909
  Transmission Date: 20161109
  Serious: Yes (Other)
  Sender: FDA-Public Use
  Company Number: US-ABBVIE-16K-163-1719627-00

PATIENT
  Sex: Male

DRUGS (1)
  1. ANDROGEL [Suspect]
     Active Substance: TESTOSTERONE
     Indication: ANDROGEN REPLACEMENT THERAPY
     Route: 061
     Dates: start: 201405, end: 201412

REACTIONS (6)
  - Anhedonia [Unknown]
  - Facial paralysis [Unknown]
  - Emotional distress [Unknown]
  - Speech disorder [Unknown]
  - Ischaemic stroke [Unknown]
  - Pain [Unknown]

NARRATIVE: CASE EVENT DATE: 20141202
